FAERS Safety Report 7664995-5 (Version None)
Quarter: 2011Q3

REPORT INFORMATION
  Report Type: 
  Country: None (occurrence: None)
  Receive Date: 20110806
  Receipt Date: 20110222
  Transmission Date: 20111222
  Serious: No
  Sender: FDA-Public Use
  Company Number: US-ABBOTT-10P-163-0694455-00

PATIENT
  Sex: Female
  Weight: 70.37 kg

DRUGS (6)
  1. CHOLESTYRA POWDER [Concomitant]
     Indication: BLOOD CHOLESTEROL INCREASED
     Dates: start: 20100901, end: 20101221
  2. FOSAMAX [Concomitant]
     Indication: OSTEOPOROSIS
  3. NIASPAN [Suspect]
     Indication: BLOOD CHOLESTEROL INCREASED
     Dosage: AT BEDTIME
     Dates: start: 20091201, end: 20101226
  4. COUMADIN [Concomitant]
     Indication: THROMBOSIS
  5. NIASPAN [Suspect]
     Dates: start: 20101226
  6. WELCHOL [Concomitant]
     Indication: BLOOD CHOLESTEROL INCREASED
     Dates: end: 20100901

REACTIONS (14)
  - SKIN BURNING SENSATION [None]
  - HEADACHE [None]
  - OESOPHAGEAL STENOSIS [None]
  - BLOOD CHOLESTEROL INCREASED [None]
  - GENERALISED ERYTHEMA [None]
  - LOW DENSITY LIPOPROTEIN INCREASED [None]
  - BURNING SENSATION [None]
  - FLUSHING [None]
  - SINUS CONGESTION [None]
  - PRURITUS [None]
  - BLOOD TRIGLYCERIDES INCREASED [None]
  - ERYTHEMA [None]
  - FEELING HOT [None]
  - HIGH DENSITY LIPOPROTEIN DECREASED [None]
